FAERS Safety Report 6255656-8 (Version None)
Quarter: 2009Q3

REPORT INFORMATION
  Report Type: 
  Country: None (occurrence: None)
  Receive Date: 20090701
  Receipt Date: 20090615
  Transmission Date: 20100115
  Serious: Yes (Other)
  Sender: FDA-Public Use
  Company Number: APP200900334

PATIENT
  Age: 91 Year
  Sex: Male

DRUGS (3)
  1. FLUOROURACIL INJ [Suspect]
     Indication: CHEMOTHERAPY
     Dosage: 3 WEEKLY 3 HOUR TREATMENT SESSIONS, INTRAVENOUS
     Route: 042
  2. LEUCOVORIN CALCIUM [Suspect]
     Indication: CHEMOTHERAPY
     Dosage: 3 WEEKLY 3 HOUR TREATMENT SESSIONS, INTRAVENOUS
     Route: 042
  3. XELODA [Concomitant]

REACTIONS (28)
  - ABDOMINAL PAIN [None]
  - AGEUSIA [None]
  - ALOPECIA [None]
  - AMNESIA [None]
  - ASTHENIA [None]
  - BALANCE DISORDER [None]
  - CONSTIPATION [None]
  - DECREASED APPETITE [None]
  - DIARRHOEA [None]
  - DYSPHAGIA [None]
  - DYSPHONIA [None]
  - FATIGUE [None]
  - GAIT DISTURBANCE [None]
  - GINGIVITIS [None]
  - HYPERAESTHESIA [None]
  - HYPOAESTHESIA [None]
  - LACRIMATION INCREASED [None]
  - NASOPHARYNGITIS [None]
  - NAUSEA [None]
  - OEDEMA PERIPHERAL [None]
  - OROPHARYNGEAL PAIN [None]
  - PARAESTHESIA [None]
  - PRURITUS [None]
  - STOMATITIS [None]
  - THROMBOSIS [None]
  - VISION BLURRED [None]
  - VOMITING [None]
  - WEIGHT DECREASED [None]
